FAERS Safety Report 24537136 (Version 2)
Quarter: 2025Q1

REPORT INFORMATION
  Report Type: Spontaneous
  Country: US (occurrence: US)
  Receive Date: 20241022
  Receipt Date: 20250129
  Transmission Date: 20250409
  Serious: No
  Sender: SANOFI AVENTIS
  Company Number: US-SA-2024SA300628

PATIENT
  Age: 63 Year
  Sex: Female

DRUGS (2)
  1. DUPIXENT [Suspect]
     Active Substance: DUPILUMAB
     Indication: Asthma
     Route: 058
     Dates: start: 20240328, end: 20240328
  2. DUPIXENT [Suspect]
     Active Substance: DUPILUMAB
     Dosage: 200 MG, QOW
     Route: 058
     Dates: start: 20240412

REACTIONS (13)
  - Lichen planus [Not Recovered/Not Resolved]
  - Oral pain [Not Recovered/Not Resolved]
  - Oral disorder [Not Recovered/Not Resolved]
  - Skin fissures [Not Recovered/Not Resolved]
  - Brain fog [Not Recovered/Not Resolved]
  - Secretion discharge [Unknown]
  - Condition aggravated [Unknown]
  - Injection site irritation [Recovered/Resolved]
  - Influenza [Recovering/Resolving]
  - Sinus congestion [Recovering/Resolving]
  - Upper-airway cough syndrome [Not Recovered/Not Resolved]
  - Pyrexia [Recovering/Resolving]
  - Cough [Recovering/Resolving]

NARRATIVE: CASE EVENT DATE: 20240101
